FAERS Safety Report 9917593 (Version 1)
Quarter: 2014Q1

REPORT INFORMATION
  Report Type: Spontaneous
  Country: IT (occurrence: IT)
  Receive Date: 20140221
  Receipt Date: 20140221
  Transmission Date: 20141002
  Serious: Yes (Hospitalization)
  Sender: FDA-Public Use
  Company Number: IT-FRI-1000054415

PATIENT
  Age: 49 Year
  Sex: Female

DRUGS (1)
  1. NEBIVOLOL [Suspect]
     Indication: HYPERTENSION
     Route: 048
     Dates: start: 20131201

REACTIONS (3)
  - Aphasia [Unknown]
  - Asthenia [Unknown]
  - Gait disturbance [Unknown]
